FAERS Safety Report 7545106-3 (Version None)
Quarter: 2011Q2

REPORT INFORMATION
  Report Type: 
  Country: None (occurrence: None)
  Receive Date: 20110610
  Receipt Date: 20110610
  Transmission Date: 20111010
  Serious: Yes (Other)
  Sender: FDA-Public Use
  Company Number: None

PATIENT
  Age: 54 Year
  Sex: Female
  Weight: 52.1637 kg

DRUGS (1)
  1. MAXITROL [Suspect]
     Indication: EYE INFECTION
     Dosage: 3X DAY
     Dates: start: 20110201, end: 20110401

REACTIONS (1)
  - COLOUR BLINDNESS ACQUIRED [None]
